FAERS Safety Report 17085229 (Version 1)
Quarter: 2019Q4

REPORT INFORMATION
  Report Type: Spontaneous
  Country: BE (occurrence: BE)
  Receive Date: 20191127
  Receipt Date: 20191127
  Transmission Date: 20200122
  Serious: Yes (Death, Other)
  Sender: FDA-Public Use
  Company Number: BE-009507513-1911BEL011234

PATIENT
  Sex: Male

DRUGS (1)
  1. KEYTRUDA [Suspect]
     Active Substance: PEMBROLIZUMAB
     Indication: CHOLANGIOCARCINOMA
     Dosage: UNK

REACTIONS (6)
  - Therapeutic response unexpected [Unknown]
  - Mental disorder [Unknown]
  - Product use in unapproved indication [Unknown]
  - Completed suicide [Fatal]
  - Fall [Unknown]
  - Limb injury [Unknown]
